FAERS Safety Report 5247239-3 (Version None)
Quarter: 2007Q1

REPORT INFORMATION
  Report Type: 
  Country: None (occurrence: None)
  Receive Date: 20070223
  Receipt Date: 20070223
  Transmission Date: 20070707
  Serious: Yes (Life-Threatening, Hospitalization)
  Sender: FDA-Public Use
  Company Number: None

PATIENT
  Age: 33 Year
  Sex: Female
  Weight: 66.6788 kg

DRUGS (5)
  1. INFLIXIMAB 100MG  CENTOCOR [Suspect]
     Indication: RHEUMATOID ARTHRITIS
     Dosage: 500MG  EVERY 2 MONTHS  IV
     Route: 042
  2. PREDNISONE [Concomitant]
  3. IBUPROFEN [Concomitant]
  4. CITRICAL [Concomitant]
  5. PRENATAL VITAMINS [Concomitant]

REACTIONS (6)
  - CHEST DISCOMFORT [None]
  - INFUSION RELATED REACTION [None]
  - PRURITUS [None]
  - RASH [None]
  - SIMILAR REACTION ON PREVIOUS EXPOSURE TO DRUG [None]
  - TONGUE DISORDER [None]
